FAERS Safety Report 4514231-3 (Version None)
Quarter: 2004Q4

REPORT INFORMATION
  Report Type: 
  Country: None (occurrence: None)
  Receive Date: 20040928
  Receipt Date: 20040715
  Transmission Date: 20050328
  Serious: No
  Sender: FDA-Public Use
  Company Number: 04P-163-0267175-00

PATIENT
  Age: 50 Year
  Sex: Female
  Weight: 63.5036 kg

DRUGS (11)
  1. HUMIRA [Suspect]
     Indication: RHEUMATOID ARTHRITIS
     Dosage: 40 MG, 1 IN 2 WK, SUBCUTANEOUS
     Route: 058
     Dates: start: 20040501
  2. PREDNISONE [Concomitant]
  3. MELOXICAM [Concomitant]
  4. ESOMEPRAZOLE [Concomitant]
  5. ALENDRONATE SODIUM [Concomitant]
  6. OXYCONTIN [Concomitant]
  7. ZOLPIDEM TARTRATE [Concomitant]
  8. PROGESTERONE [Concomitant]
  9. ESTROGEN NOS [Concomitant]
  10. IMIPRAM TAB [Concomitant]
  11. XANAFLAX [Concomitant]

REACTIONS (5)
  - BURNING SENSATION [None]
  - HEADACHE [None]
  - INJECTION SITE BURNING [None]
  - INJECTION SITE PRURITUS [None]
  - RASH GENERALISED [None]
